FAERS Safety Report 8200577-4 (Version None)
Quarter: 2012Q1

REPORT INFORMATION
  Report Type: 
  Country: None (occurrence: None)
  Receive Date: 20120312
  Receipt Date: 20120229
  Transmission Date: 20120608
  Serious: Yes (Other)
  Sender: FDA-Public Use
  Company Number: NL-NOVOPROD-346122

PATIENT
  Age: 68 Year
  Sex: Male
  Weight: 102 kg

DRUGS (2)
  1. METFORMIN HCL [Concomitant]
     Dosage: 2DD 850MG
  2. VICTOZA [Suspect]
     Indication: TYPE 2 DIABETES MELLITUS
     Dosage: 1.8 MG, QD
     Dates: start: 20110126, end: 20120208

REACTIONS (1)
  - NEUROENDOCRINE TUMOUR [None]
